FAERS Safety Report 16921895 (Version 1)
Quarter: 2019Q4

REPORT INFORMATION
  Report Type: Spontaneous
  Country: US (occurrence: US)
  Receive Date: 20191015
  Receipt Date: 20191015
  Transmission Date: 20200122
  Serious: Yes (Hospitalization, Other)
  Sender: FDA-Public Use
  Company Number: NVSC2019US001232

PATIENT
  Age: 43 Year
  Sex: Female

DRUGS (2)
  1. TEGRETOL [Suspect]
     Active Substance: CARBAMAZEPINE
     Indication: NEURALGIA
     Dosage: 200 MG, QD
     Route: 048
  2. TEGRETOL [Suspect]
     Active Substance: CARBAMAZEPINE
     Indication: NEURITIS

REACTIONS (11)
  - Large intestinal obstruction [Unknown]
  - Toxic epidermal necrolysis [Unknown]
  - Dry eye [Unknown]
  - Stevens-Johnson syndrome [Unknown]
  - Scar [Unknown]
  - Post-traumatic stress disorder [Unknown]
  - Delirium [Unknown]
  - Dyspnoea [Unknown]
  - Rash [Unknown]
  - Abdominal pain [Unknown]
  - Vulvovaginal pruritus [Unknown]
